FAERS Safety Report 5482592-7 (Version None)
Quarter: 2007Q4

REPORT INFORMATION
  Report Type: 
  Country: None (occurrence: None)
  Receive Date: 20071011
  Receipt Date: 20070725
  Transmission Date: 20080405
  Serious: No
  Sender: FDA-Public Use
  Company Number: A0666325A

PATIENT
  Age: 45 Year
  Sex: Female

DRUGS (3)
  1. TYKERB [Suspect]
     Indication: BREAST CANCER
     Dosage: 1250MG PER DAY
     Route: 048
  2. XELODA [Concomitant]
  3. DESMOPRESSIN ACETATE [Concomitant]

REACTIONS (3)
  - ARTHRALGIA [None]
  - DIARRHOEA [None]
  - OEDEMA PERIPHERAL [None]
